FAERS Safety Report 14146046 (Version 1)
Quarter: 2017Q4

REPORT INFORMATION
  Report Type: Spontaneous
  Country: FR (occurrence: FR)
  Receive Date: 20171031
  Receipt Date: 20171031
  Transmission Date: 20180321
  Serious: Yes (Hospitalization)
  Sender: FDA-Public Use
  Company Number: FR-SA-2017SA210732

PATIENT
  Age: 71 Year
  Sex: Male

DRUGS (13)
  1. INEXIUM [Concomitant]
     Active Substance: ESOMEPRAZOLE
     Indication: PROPHYLAXIS AGAINST GASTROINTESTINAL ULCER
     Route: 048
  2. SELOZOK [Concomitant]
     Active Substance: METOPROLOL SUCCINATE
     Indication: CARDIAC FAILURE
     Dosage: PROLONGED RELEASE FILM COATED TABLET
     Route: 048
  3. RULID [Suspect]
     Active Substance: ROXITHROMYCIN
     Indication: INFECTION
     Route: 048
     Dates: start: 20170716, end: 20170719
  4. DUOPLAVIN [Concomitant]
     Active Substance: ASPIRIN\CLOPIDOGREL
     Indication: ACUTE CORONARY SYNDROME
     Route: 048
  5. OPDIVO [Suspect]
     Active Substance: NIVOLUMAB
     Indication: LUNG ADENOCARCINOMA
     Dosage: 3 COURSES IN TOTAL 3 MG / KG 1 IN 2
     Route: 065
     Dates: start: 20170612, end: 20170711
  6. ATORVASTATIN [Concomitant]
     Active Substance: ATORVASTATIN
     Indication: DYSLIPIDAEMIA
     Route: 048
     Dates: end: 20170719
  7. DIAMICRON [Concomitant]
     Active Substance: GLICLAZIDE
     Indication: TYPE 2 DIABETES MELLITUS
     Dosage: FORM: MODIFIED RELEASE DIVISIBLE TABLET
     Route: 048
     Dates: end: 20170719
  8. METFORMIN [Concomitant]
     Active Substance: METFORMIN HYDROCHLORIDE
     Indication: TYPE 2 DIABETES MELLITUS
     Route: 048
     Dates: end: 20170718
  9. CEFOTAXIME SODIUM [Suspect]
     Active Substance: CEFOTAXIME SODIUM
     Indication: INFECTION
     Route: 042
     Dates: start: 20170716, end: 20170719
  10. SERESTA [Concomitant]
     Active Substance: OXAZEPAM
     Indication: ANXIETY
     Route: 065
  11. ODRIK [Concomitant]
     Active Substance: TRANDOLAPRIL
     Indication: HYPERTENSION
     Route: 048
     Dates: end: 20170719
  12. INNOHEP [Concomitant]
     Active Substance: TINZAPARIN SODIUM
     Indication: THROMBOSIS
     Dosage: 14000 IU ANTI-XA/0.7 ML, INJECTABLE SOLUTION (SC)IN PREFILLED SYRINGE
     Route: 058
  13. CORDARONE [Concomitant]
     Active Substance: AMIODARONE HYDROCHLORIDE
     Indication: TACHYCARDIA
     Route: 048
     Dates: end: 20170719

REACTIONS (2)
  - Hepatocellular injury [Recovering/Resolving]
  - Cardiac failure [Not Recovered/Not Resolved]

NARRATIVE: CASE EVENT DATE: 20170719
